FAERS Safety Report 7310812-2 (Version None)
Quarter: 2011Q1

REPORT INFORMATION
  Report Type: 
  Country: None (occurrence: None)
  Receive Date: 20110214
  Receipt Date: 20110210
  Transmission Date: 20110831
  Serious: Yes (Other)
  Sender: FDA-Public Use
  Company Number: SP03485

PATIENT
  Age: 59 Year
  Sex: Male

DRUGS (2)
  1. OSMOPREP [Suspect]
     Indication: BOWEL PREPARATION
     Dosage: (32 TABLETS), ORAL
     Route: 048
     Dates: start: 20110201, end: 20110202
  2. PLAVIX [Suspect]

REACTIONS (2)
  - GASTRIC ULCER HAEMORRHAGE [None]
  - INTESTINAL ULCER [None]
